FAERS Safety Report 8430782-3 (Version None)
Quarter: 2012Q2

REPORT INFORMATION
  Report Type: 
  Country: None (occurrence: None)
  Receive Date: 20120612
  Receipt Date: 20120605
  Transmission Date: 20120825
  Serious: Yes (Hospitalization)
  Sender: FDA-Public Use
  Company Number: NL-BAYER-2012-013239

PATIENT
  Sex: Male
  Weight: 65 kg

DRUGS (14)
  1. ASPIRIN [Suspect]
     Indication: ACUTE CORONARY SYNDROME
     Dosage: 80MG DAILY DOSE
     Route: 048
     Dates: start: 20030401
  2. CLOPIDOGREL [Interacting]
     Indication: PERCUTANEOUS CORONARY INTERVENTION
     Dosage: 75MG DAILY DOSE
     Route: 048
     Dates: start: 20120110
  3. HEPARIN [Interacting]
     Dosage: 100IU
     Dates: start: 20120203, end: 20120203
  4. AMLODIPINE [Concomitant]
     Indication: HYPERTENSION
     Dosage: 5MG
     Route: 048
     Dates: start: 20091001
  5. METOPROLOL [Concomitant]
     Indication: HYPERTENSION
     Dosage: 50MG DAILY DOSE
     Route: 048
     Dates: start: 20030401
  6. METOPROLOL [Concomitant]
     Indication: ACUTE CORONARY SYNDROME
  7. DUSPATAL [Concomitant]
     Indication: ABDOMINAL PAIN
     Dosage: 200MG DAILY DOSE
     Route: 048
     Dates: start: 20090817
  8. MONOCEDOCARD [Concomitant]
     Indication: CHEST PAIN
     Dosage: 100MG DAILY DOSE
     Route: 048
     Dates: start: 20051101
  9. LOSARTAN [Concomitant]
     Indication: HYPERTENSION
     Dosage: 50MG DAILY DOSE
     Route: 048
     Dates: start: 20040920
  10. CALCIUM CARBONATE [Concomitant]
     Indication: OSTEOPOROSIS
     Dosage: 500MG DAILY DOSE
     Route: 048
     Dates: start: 20090817
  11. METAMUCIL-2 [Concomitant]
     Indication: CONSTIPATION
     Dosage: UNK
     Route: 048
     Dates: start: 20080401
  12. ALPRAZOLAM [Concomitant]
     Indication: ANXIETY
     Dosage: 0.25MG DAILY DOSE
     Route: 048
  13. HEPARIN [Interacting]
     Indication: ANTICOAGULANT THERAPY
     Dosage: 4500 IU
     Route: 042
     Dates: start: 20120203, end: 20120203
  14. PANTOPRAZOLE [Concomitant]
     Indication: ABDOMINAL DISCOMFORT
     Dosage: 40MG DAILY
     Route: 048
     Dates: start: 20120110

REACTIONS (1)
  - VASCULAR PSEUDOANEURYSM [None]
